FAERS Safety Report 17829746 (Version 1)
Quarter: 2020Q2

REPORT INFORMATION
  Report Type: Spontaneous
  Country: US (occurrence: US)
  Receive Date: 20200527
  Receipt Date: 20200527
  Transmission Date: 20200714
  Serious: Yes (Disabling, Other)
  Sender: FDA-Public Use
  Company Number: None

PATIENT
  Age: 61 Year
  Sex: Male
  Weight: 85.5 kg

DRUGS (16)
  1. ORENCIA [Suspect]
     Active Substance: ABATACEPT
     Indication: RHEUMATOID ARTHRITIS
     Dosage: ?          QUANTITY:1 INJECTION(S);OTHER FREQUENCY:ONCE A WEEK;?
     Route: 058
     Dates: start: 20200227, end: 20200423
  2. HYDROXYCHLOROQUINE [Suspect]
     Active Substance: HYDROXYCHLOROQUINE
     Indication: RHEUMATOID ARTHRITIS
     Dosage: ?          QUANTITY:1 CAPSULE(S);?
     Route: 048
     Dates: start: 20180612, end: 20200416
  3. VITAMIN A [Concomitant]
     Active Substance: VITAMIN A
  4. LISINOPRIL. [Concomitant]
     Active Substance: LISINOPRIL
  5. TOPIRAMATE. [Concomitant]
     Active Substance: TOPIRAMATE
  6. IRON TABLETS TABLET [Concomitant]
     Active Substance: IRON
  7. CALCIUM 600MGS [Concomitant]
  8. PREDNISONE 4MGS [Concomitant]
  9. VITAMIN D3 [Concomitant]
     Active Substance: CHOLECALCIFEROL
  10. VITAMIN B12 [Concomitant]
     Active Substance: CYANOCOBALAMIN
  11. MORPHINE 30MG [Concomitant]
  12. ASPIRIN 81MG [Concomitant]
     Active Substance: ASPIRIN
  13. OXYCODONE [Concomitant]
     Active Substance: OXYCODONE
  14. SPIRIVA RESPIMAT 2.5MG [Concomitant]
  15. CETIRIZINE [Concomitant]
     Active Substance: CETIRIZINE HYDROCHLORIDE
  16. FOLIC ACID 1MG [Concomitant]
     Active Substance: FOLIC ACID

REACTIONS (4)
  - Tooth disorder [None]
  - Chronic obstructive pulmonary disease [None]
  - Tooth fracture [None]
  - Gingival erosion [None]

NARRATIVE: CASE EVENT DATE: 20200227
